FAERS Safety Report 7361360-5 (Version None)
Quarter: 2011Q1

REPORT INFORMATION
  Report Type: 
  Country: None (occurrence: None)
  Receive Date: 20110318
  Receipt Date: 20110307
  Transmission Date: 20110831
  Serious: Yes (Disabling)
  Sender: FDA-Public Use
  Company Number: B0706548A

PATIENT
  Age: 65 Year
  Sex: Female
  Weight: 57 kg

DRUGS (1)
  1. REVOLADE [Suspect]
     Indication: THROMBOCYTOPENIA
     Route: 065

REACTIONS (5)
  - SPLENOMEGALY [None]
  - LYMPHADENOPATHY [None]
  - LIVER INJURY [None]
  - JAUNDICE [None]
  - ASCITES [None]
